FAERS Safety Report 22248039 (Version 2)
Quarter: 2023Q2

REPORT INFORMATION
  Report Type: Report from Study
  Country: AU (occurrence: AU)
  Receive Date: 20230425
  Receipt Date: 20230505
  Transmission Date: 20230722
  Serious: Yes (Death)
  Sender: FDA-Public Use
  Company Number: AU-BEIGENE-BGN-2023-003284

PATIENT
  Age: 49 Year
  Sex: Male
  Weight: 65.9 kg

DRUGS (16)
  1. TISLELIZUMAB [Suspect]
     Active Substance: TISLELIZUMAB
     Indication: Adenocarcinoma gastric
     Dosage: 8 MG/KG, Q3W
     Route: 042
     Dates: start: 20230314
  2. TISLELIZUMAB [Suspect]
     Active Substance: TISLELIZUMAB
     Dosage: 6 MG/KG
     Route: 042
     Dates: end: 20230404
  3. CAPECITABINE [Concomitant]
     Active Substance: CAPECITABINE
     Indication: Adenocarcinoma gastric
     Dosage: 1000 MILLIGRAM/SQ. METER, BID, D1-14
     Route: 048
     Dates: start: 20230314, end: 20230404
  4. FENTANYL [Concomitant]
     Active Substance: FENTANYL
     Indication: Back pain
     Dosage: 50UG/HR, OTHER
     Route: 065
     Dates: start: 20230117
  5. HYDROMORPHONE HYDROCHLORIDE [Concomitant]
     Active Substance: HYDROMORPHONE HYDROCHLORIDE
     Indication: Back pain
     Dosage: 8 MG, QD
     Route: 065
     Dates: start: 20230113
  6. HYDROMORPHONE HYDROCHLORIDE [Concomitant]
     Active Substance: HYDROMORPHONE HYDROCHLORIDE
     Dosage: 16 MG, QD
     Route: 065
     Dates: start: 20230113
  7. PREGABALIN [Concomitant]
     Active Substance: PREGABALIN
     Indication: Neuralgia
     Dosage: 300 MG, BID
     Route: 065
     Dates: start: 20221004
  8. AMITRIPTYLINE [Concomitant]
     Active Substance: AMITRIPTYLINE
     Indication: Sleep disorder
     Dosage: 20 MG, QD
     Route: 065
     Dates: start: 20230117
  9. PANTOPRAZOLE [Concomitant]
     Active Substance: PANTOPRAZOLE
     Indication: Sleep disorder
     Dosage: 40 MG, BID
     Route: 065
     Dates: start: 20221216
  10. LPG [Concomitant]
     Indication: Back pain
     Dosage: 1-2ML, PRN
     Route: 065
     Dates: start: 202211
  11. LPG [Concomitant]
     Indication: Anxiety
  12. DILAUDID [Concomitant]
     Active Substance: HYDROMORPHONE HYDROCHLORIDE
     Indication: Back pain
     Dosage: 8 MG, PRN
     Route: 065
     Dates: start: 20230113
  13. NETUPITANT [Concomitant]
     Active Substance: NETUPITANT
     Indication: Chemotherapy side effect prophylaxis
     Dosage: 300 MG, Q3W
     Route: 065
     Dates: start: 20230222
  14. PALONOSETRON [Concomitant]
     Active Substance: PALONOSETRON
     Indication: Chemotherapy side effect prophylaxis
     Dosage: 500 UG, Q3W
     Route: 065
     Dates: start: 20230222
  15. DEXAMETHASONE [Concomitant]
     Active Substance: DEXAMETHASONE
     Indication: Chemotherapy side effect prophylaxis
     Dosage: 8 MG, Q3W
     Route: 065
     Dates: start: 20230222
  16. METOCLOPRAMIDE [Concomitant]
     Active Substance: METOCLOPRAMIDE
     Indication: Chemotherapy side effect prophylaxis
     Dosage: 10 MG, PRN
     Route: 065
     Dates: start: 20230222

REACTIONS (1)
  - Death [Fatal]

NARRATIVE: CASE EVENT DATE: 20230414
